FAERS Safety Report 20784990 (Version 1)
Quarter: 2022Q2

REPORT INFORMATION
  Report Type: Spontaneous
  Country: US (occurrence: None)
  Receive Date: 20220503
  Receipt Date: 20220503
  Transmission Date: 20220721
  Serious: No
  Sender: FDA-Public Use
  Company Number: None

PATIENT
  Sex: Male

DRUGS (1)
  1. TREMFYA [Suspect]
     Active Substance: GUSELKUMAB
     Indication: Psoriasis
     Dosage: OTHER QUANTITY : 100/1 MG/ML;?OTHER FREQUENCY : 1 SYRINGE/8 WEEKS;?
     Dates: start: 20220422

REACTIONS (5)
  - Pruritus [None]
  - Burning sensation [None]
  - Pain [None]
  - Scab [None]
  - Loss of personal independence in daily activities [None]
